FAERS Safety Report 10012080 (Version 1)
Quarter: 2014Q1

REPORT INFORMATION
  Report Type: Spontaneous
  Country: US (occurrence: None)
  Receive Date: 20140304
  Receipt Date: 20140304
  Transmission Date: 20141002
  Serious: Yes (Hospitalization, Other)
  Sender: FDA-Public Use
  Company Number: RB-57023-2013

PATIENT
  Age: 52 Year
  Sex: Female

DRUGS (6)
  1. SUBOXONE [Suspect]
     Indication: PAIN
     Dosage: (SUBOXONE FILM; TOOK SIX TABLETS SUBLINQUAL)
     Dates: start: 201304, end: 201304
  2. KLONOPIN [Suspect]
     Indication: DEPRESSION
     Dosage: (DOSING REGIMEN: UP TO 3 TIMES DAILY ORAL)
     Route: 048
     Dates: end: 201304
  3. MS CONTIN [Suspect]
     Indication: PAIN
     Dosage: (100 MG BID ORAL) THERAPY DATES UNKNOWN TO APR2013)
     Route: 048
     Dates: end: 201304
  4. CODEINE [Suspect]
     Indication: PAIN
     Dosage: (DOSING REGIMEN : AS NEEDED ORAL) THERAPY  UNKNOWN UNTIL 04/??/2013)
     Route: 048
     Dates: end: 201304
  5. DILAUDID [Suspect]
     Indication: PAIN
     Dosage: (DOSING  DETAILS UNKNOWN UNKNOWN)  THERAPY DATES UNTIL  UNKNOWN UNTIL 04/??/2013)
     Dates: end: 201304
  6. ZOLOFT [Concomitant]

REACTIONS (10)
  - Off label use [None]
  - Hypoaesthesia [None]
  - Nausea [None]
  - Musculoskeletal disorder [None]
  - Abdominal pain [None]
  - Diarrhoea [None]
  - Malaise [None]
  - Vomiting [None]
  - Muscle spasms [None]
  - Dehydration [None]
